FAERS Safety Report 15244736 (Version 1)
Quarter: 2018Q3

REPORT INFORMATION
  Report Type: Report from Study
  Country: US (occurrence: US)
  Receive Date: 20180806
  Receipt Date: 20180806
  Transmission Date: 20181010
  Serious: Yes (Other)
  Sender: FDA-Public Use
  Company Number: US-SHIRE-US201829736

PATIENT
  Sex: Female

DRUGS (1)
  1. HUMAN NORMAL IMMUNOGLOBULIN; LIQUID [Suspect]
     Active Substance: HUMAN IMMUNOGLOBULIN G
     Indication: PRIMARY IMMUNODEFICIENCY SYNDROME
     Dosage: 35 G, EVERY 3 WK
     Route: 042

REACTIONS (8)
  - Sinusitis [Unknown]
  - Chronic kidney disease [Unknown]
  - Thyroid hormones decreased [Unknown]
  - Fall [Unknown]
  - Headache [Unknown]
  - Fatigue [Unknown]
  - Tendon injury [Unknown]
  - Blood cholesterol increased [Unknown]
